FAERS Safety Report 7786662-X (Version None)
Quarter: 2011Q3

REPORT INFORMATION
  Report Type: 
  Country: None (occurrence: None)
  Receive Date: 20110929
  Receipt Date: 20110927
  Transmission Date: 20111222
  Serious: Yes (Other)
  Sender: FDA-Public Use
  Company Number: US-PFIZER INC-2011229961

PATIENT
  Sex: Female
  Weight: 156 kg

DRUGS (3)
  1. CHANTIX [Suspect]
     Indication: SMOKING CESSATION THERAPY
     Dosage: UNK
     Dates: start: 20110922
  2. LOTREL [Concomitant]
     Indication: BLOOD PRESSURE ABNORMAL
     Dosage: 10/20 MG
  3. PLAVIX [Concomitant]
     Indication: STENT PLACEMENT
     Dosage: UNK

REACTIONS (3)
  - LIP SWELLING [None]
  - HYPERSENSITIVITY [None]
  - SWELLING FACE [None]
